FAERS Safety Report 19442117 (Version 1)
Quarter: 2021Q2

REPORT INFORMATION
  Report Type: Spontaneous
  Country: US (occurrence: US)
  Receive Date: 20210617
  Receipt Date: 20210617
  Transmission Date: 20210717
  Serious: Yes (Death)
  Sender: FDA-Public Use
  Company Number: None

PATIENT
  Age: 76 Year
  Sex: Male

DRUGS (18)
  1. GLIPIZIDE. [Concomitant]
     Active Substance: GLIPIZIDE
  2. TORSEMIDE. [Concomitant]
     Active Substance: TORSEMIDE
  3. LEVOTHYROXIN [Concomitant]
     Active Substance: LEVOTHYROXINE
  4. SPIRONOLACT [Concomitant]
     Active Substance: SPIRONOLACTONE
  5. CARVEDILOL. [Concomitant]
     Active Substance: CARVEDILOL
  6. PERFORMIST NEB [Concomitant]
  7. AZITHROMYCIN ANHYDROUS. [Concomitant]
     Active Substance: AZITHROMYCIN ANHYDROUS
  8. FAMOTIDINE. [Concomitant]
     Active Substance: FAMOTIDINE
  9. ZYRTEC ALLGY [Concomitant]
  10. ATORVASTATIN [Concomitant]
     Active Substance: ATORVASTATIN
  11. BREO ELLIPTA INH [Concomitant]
  12. SILDENAFIL, 20 MG [Suspect]
     Active Substance: SILDENAFIL
     Indication: PULMONARY HYPERTENSION
     Route: 048
     Dates: start: 20200629
  13. ELIQUIS [Concomitant]
     Active Substance: APIXABAN
  14. ALLOPURINOL. [Concomitant]
     Active Substance: ALLOPURINOL
  15. YUPELRI SOL [Concomitant]
  16. BUDESONIDE SUS [Concomitant]
  17. DALIRESP [Concomitant]
     Active Substance: ROFLUMILAST
  18. ESCITALOPRAM [Concomitant]
     Active Substance: ESCITALOPRAM OXALATE

REACTIONS (1)
  - Death [None]

NARRATIVE: CASE EVENT DATE: 20210616
